FAERS Safety Report 25583341 (Version 1)
Quarter: 2025Q3

REPORT INFORMATION
  Report Type: Spontaneous
  Country: EU (occurrence: EU)
  Receive Date: 20250721
  Receipt Date: 20250721
  Transmission Date: 20251021
  Serious: Yes (Other)
  Sender: CHEPLAPHARM
  Company Number: None

PATIENT
  Age: 50 Year
  Sex: Male
  Weight: 64 kg

DRUGS (14)
  1. QUETIAPINE [Interacting]
     Active Substance: QUETIAPINE
     Indication: Product used for unknown indication
     Dosage: 50 MG: 2 IN THE EVENING; GRADUALLY REDUCED TO ONE TABLET?DAILY DOSE: 100 MILLIGRAM
     Route: 048
  2. QUETIAPINE [Interacting]
     Active Substance: QUETIAPINE
     Indication: Product used for unknown indication
     Dosage: 50 MG/DAY?DAILY DOSE: 50 MILLIGRAM
     Route: 048
  3. CENOBAMATE [Interacting]
     Active Substance: CENOBAMATE
     Indication: Epilepsy
     Dosage: EVENING ?DAILY DOSE: 200 MILLIGRAM
     Route: 048
     Dates: start: 202311, end: 20250328
  4. CENOBAMATE [Interacting]
     Active Substance: CENOBAMATE
     Indication: Epilepsy
     Dosage: REDUCTION OF ONTORZY (150 MG/D)?DAILY DOSE: 150 MILLIGRAM
     Route: 048
  5. CLOBAZAM [Interacting]
     Active Substance: CLOBAZAM
     Indication: Epilepsy
     Dosage: IN THE EVENING?DAILY DOSE: 10 MILLIGRAM
     Route: 048
     Dates: end: 2024
  6. CLOBAZAM [Interacting]
     Active Substance: CLOBAZAM
     Indication: Insomnia
     Dosage: IN THE EVENING?DAILY DOSE: 10 MILLIGRAM
     Route: 048
     Dates: end: 2024
  7. CLOBAZAM [Interacting]
     Active Substance: CLOBAZAM
     Indication: Epilepsy
     Dosage: IN THE EVENING?DAILY DOSE: 5 MILLIGRAM
     Route: 048
  8. CLOBAZAM [Interacting]
     Active Substance: CLOBAZAM
     Indication: Insomnia
     Dosage: IN THE EVENING?DAILY DOSE: 5 MILLIGRAM
     Route: 048
  9. SERTRALINE HYDROCHLORIDE [Suspect]
     Active Substance: SERTRALINE HYDROCHLORIDE
     Indication: Drug ineffective
     Dosage: DAILY DOSE: 100 MILLIGRAM
     Dates: start: 202408
  10. SERTRALINE HYDROCHLORIDE [Suspect]
     Active Substance: SERTRALINE HYDROCHLORIDE
     Indication: Product used for unknown indication
     Dosage: DAILY DOSE: 100 MILLIGRAM
     Dates: start: 202408
  11. SERTRALINE HYDROCHLORIDE [Suspect]
     Active Substance: SERTRALINE HYDROCHLORIDE
     Indication: Drug ineffective
     Route: 048
  12. SERTRALINE HYDROCHLORIDE [Suspect]
     Active Substance: SERTRALINE HYDROCHLORIDE
     Indication: Product used for unknown indication
     Route: 048
  13. BRIVIACT [Concomitant]
     Active Substance: BRIVARACETAM
  14. VIMPAT [Concomitant]
     Active Substance: LACOSAMIDE

REACTIONS (6)
  - Asthenia [Recovering/Resolving]
  - Erectile dysfunction [Recovering/Resolving]
  - Tremor [Recovered/Resolved]
  - Sedation [Unknown]
  - Drug interaction [Unknown]
  - Insomnia [Unknown]

NARRATIVE: CASE EVENT DATE: 20231101
